FAERS Safety Report 10344109 (Version 1)
Quarter: 2014Q3

REPORT INFORMATION
  Report Type: Spontaneous
  Country: US (occurrence: US)
  Receive Date: 20140728
  Receipt Date: 20140728
  Transmission Date: 20150326
  Serious: No
  Sender: FDA-Public Use
  Company Number: US-009507513-1407USA010192

PATIENT
  Age: 20 Year
  Sex: Female
  Weight: 77.98 kg

DRUGS (1)
  1. NEXPLANON [Suspect]
     Active Substance: ETONOGESTREL
     Indication: CONTRACEPTION
     Dosage: LEFT ARM SUBDERMAL
     Route: 059
     Dates: start: 20120828

REACTIONS (9)
  - Amenorrhoea [Unknown]
  - Implant site pruritus [Unknown]
  - Abdominal pain lower [Unknown]
  - Metrorrhagia [Unknown]
  - Implant site pain [Unknown]
  - Weight increased [Unknown]
  - Menorrhagia [Unknown]
  - Menstruation irregular [Unknown]
  - Muscle spasms [Unknown]

NARRATIVE: CASE EVENT DATE: 201208
